FAERS Safety Report 13227504 (Version 4)
Quarter: 2017Q1

REPORT INFORMATION
  Report Type: Spontaneous
  Country: DE (occurrence: DE)
  Receive Date: 20170213
  Receipt Date: 20170330
  Transmission Date: 20170428
  Serious: Yes (Hospitalization, Other)
  Sender: FDA-Public Use
  Company Number: DE-GILEAD-2017-0257594

PATIENT
  Age: 53 Year
  Sex: Male

DRUGS (17)
  1. METOPROLOL. [Concomitant]
     Active Substance: METOPROLOL
  2. RAMIPRIL. [Concomitant]
     Active Substance: RAMIPRIL
  3. SALBUTAMOL [Concomitant]
     Active Substance: ALBUTEROL
  4. HARVONI [Suspect]
     Active Substance: LEDIPASVIR\SOFOSBUVIR
     Indication: CHRONIC HEPATITIS C
     Dosage: 1 DF, QD
     Route: 065
     Dates: start: 20160905, end: 201611
  5. DIPYRIDAMOLE. [Concomitant]
     Active Substance: DIPYRIDAMOLE
  6. TORASEMIDE [Concomitant]
     Active Substance: TORSEMIDE
  7. MARCUMAR [Concomitant]
     Active Substance: PHENPROCOUMON
  8. POTASSIUM [Concomitant]
     Active Substance: POTASSIUM
  9. PREDNISONE. [Concomitant]
     Active Substance: PREDNISONE
  10. HEPARIN [Concomitant]
     Active Substance: HEPARIN SODIUM
  11. WARFARIN [Concomitant]
     Active Substance: WARFARIN
  12. AMLODIPINE [Concomitant]
     Active Substance: AMLODIPINE BESYLATE
  13. ASPIRIN                            /00002701/ [Concomitant]
     Active Substance: ASPIRIN
  14. FLUTICASONE. [Concomitant]
     Active Substance: FLUTICASONE
  15. IPRATROPIUM BROMIDE. [Concomitant]
     Active Substance: IPRATROPIUM BROMIDE
  16. OMEPRAZOLE. [Concomitant]
     Active Substance: OMEPRAZOLE
  17. SIMVASTATIN. [Concomitant]
     Active Substance: SIMVASTATIN

REACTIONS (3)
  - Chronic obstructive pulmonary disease [Unknown]
  - Atrial fibrillation [Unknown]
  - Atrial flutter [Unknown]

NARRATIVE: CASE EVENT DATE: 201609
